FAERS Safety Report 24742020 (Version 1)
Quarter: 2024Q4

REPORT INFORMATION
  Report Type: Spontaneous
  Country: US (occurrence: US)
  Receive Date: 20241217
  Receipt Date: 20241217
  Transmission Date: 20250115
  Serious: Yes (Hospitalization, Other)
  Sender: Vantive US Healthcare
  Company Number: US-VANTIVE-2024VAN021718

PATIENT
  Sex: Female

DRUGS (1)
  1. EXTRANEAL [Suspect]
     Active Substance: CALCIUM CHLORIDE\ICODEXTRIN\MAGNESIUM CHLORIDE\SODIUM CHLORIDE\SODIUM LACTATE
     Dosage: LAST FILL
     Route: 033

REACTIONS (1)
  - Peritonitis [Unknown]

NARRATIVE: CASE EVENT DATE: 20241206
